FAERS Safety Report 5060697-2 (Version None)
Quarter: 2006Q3

REPORT INFORMATION
  Report Type: 
  Country: None (occurrence: None)
  Receive Date: 20060725
  Receipt Date: 20060620
  Transmission Date: 20061208
  Serious: Yes (Life-Threatening, Hospitalization, Other)
  Sender: FDA-Public Use
  Company Number: PHEH2006US08109

PATIENT
  Age: 1 Year

DRUGS (1)
  1. ELIDEL [Suspect]
     Indication: ECZEMA
     Dosage: ONE OR TWO X A DAY
     Route: 061
     Dates: start: 20030609, end: 20040806

REACTIONS (1)
  - ACUTE LYMPHOCYTIC LEUKAEMIA [None]
